FAERS Safety Report 21839924 (Version 1)
Quarter: 2023Q1

REPORT INFORMATION
  Report Type: Spontaneous
  Country: US (occurrence: US)
  Receive Date: 20230110
  Receipt Date: 20230110
  Transmission Date: 20230418
  Serious: Yes (Hospitalization)
  Sender: FDA-Public Use
  Company Number: US-CIPLA (EU) LIMITED-2022US07624

PATIENT
  Age: 74 Year
  Sex: Female

DRUGS (8)
  1. ALBUTEROL [Suspect]
     Active Substance: ALBUTEROL
     Indication: Chronic obstructive pulmonary disease
     Dosage: UNK
     Route: 065
  2. ALBUTEROL [Suspect]
     Active Substance: ALBUTEROL
     Dosage: UNK (NEBULIZER)
     Route: 065
  3. ALBUTEROL\IPRATROPIUM [Suspect]
     Active Substance: ALBUTEROL\IPRATROPIUM
     Indication: Chronic obstructive pulmonary disease
     Dosage: UNK
     Route: 065
  4. METHYLPREDNISOLONE [Concomitant]
     Active Substance: METHYLPREDNISOLONE
     Indication: Chronic obstructive pulmonary disease
     Dosage: UNK
     Route: 065
  5. METHYLPREDNISOLONE [Concomitant]
     Active Substance: METHYLPREDNISOLONE
     Dosage: UNK
     Route: 065
  6. AZITHROMYCIN [Concomitant]
     Active Substance: AZITHROMYCIN
     Indication: Chronic obstructive pulmonary disease
     Dosage: UNK
     Route: 065
  7. CEFTRIAXONE [Concomitant]
     Active Substance: CEFTRIAXONE
     Indication: Chronic obstructive pulmonary disease
     Dosage: UNK
     Route: 065
  8. CEFTRIAXONE [Concomitant]
     Active Substance: CEFTRIAXONE
     Dosage: UNK
     Route: 065

REACTIONS (1)
  - Stress cardiomyopathy [Recovered/Resolved]
